FAERS Safety Report 13125830 (Version 1)
Quarter: 2017Q1

REPORT INFORMATION
  Report Type: Spontaneous
  Country: US (occurrence: US)
  Receive Date: 20170117
  Receipt Date: 20170117
  Transmission Date: 20170428
  Serious: Yes (Disabling)
  Sender: FDA-Public Use
  Company Number: None

PATIENT
  Age: 58 Year
  Sex: Male
  Weight: 99 kg

DRUGS (2)
  1. MULTIVITAMIN [Concomitant]
     Active Substance: VITAMINS
  2. PRAVASTATIN SODIUM. [Suspect]
     Active Substance: PRAVASTATIN SODIUM
     Indication: BLOOD CHOLESTEROL INCREASED
     Dosage: ?          QUANTITY:30 TABLET(S);?
     Route: 048

REACTIONS (13)
  - Personality change [None]
  - Irritability [None]
  - Emotional disorder [None]
  - Amnesia [None]
  - Impaired work ability [None]
  - Abnormal behaviour [None]
  - Weight increased [None]
  - Sleep disorder [None]
  - Dissociation [None]
  - Aggression [None]
  - Fatigue [None]
  - Nightmare [None]
  - Confusional state [None]
